FAERS Safety Report 8854672 (Version 1)
Quarter: 2012Q4

REPORT INFORMATION
  Report Type: 
  Country: US (occurrence: US)
  Receive Date: 20121023
  Receipt Date: 20121023
  Transmission Date: 20130627
  Serious: Yes (Hospitalization, Other)
  Sender: FDA-Public Use
  Company Number: US-B.I. PHARMACEUTICALS,INC./RIDGEFIELD-2012-BP-25926BP

PATIENT
  Sex: Male
  Weight: 134 kg

DRUGS (9)
  1. SPIRIVA [Suspect]
     Dosage: 18 mcg
     Route: 055
     Dates: start: 1999
  2. BENICAR [Concomitant]
     Indication: HYPERTENSION
     Route: 048
  3. DONEZEPRIL [Concomitant]
     Dosage: 5 mg
     Route: 048
  4. NAMENDA [Concomitant]
     Dosage: 5 mg
     Route: 048
  5. PREVACID [Concomitant]
     Indication: GASTROOESOPHAGEAL REFLUX DISEASE
     Dosage: 30 mg
     Route: 048
  6. PAXIL [Concomitant]
     Indication: DEPRESSION
     Dosage: 10 mg
     Route: 048
  7. ZOCOR [Concomitant]
     Indication: BLOOD CHOLESTEROL INCREASED
     Dosage: 20 mg
     Route: 048
  8. XANAX [Concomitant]
     Indication: SLEEP DISORDER
     Route: 048
  9. VITAMINS [Concomitant]
     Route: 048

REACTIONS (2)
  - Prostate cancer [Recovered/Resolved]
  - Macular degeneration [Not Recovered/Not Resolved]
